FAERS Safety Report 10869596 (Version 1)
Quarter: 2015Q1

REPORT INFORMATION
  Report Type: Spontaneous
  Country: IT (occurrence: IT)
  Receive Date: 20150226
  Receipt Date: 20150226
  Transmission Date: 20150721
  Serious: Yes (Hospitalization, Other)
  Sender: FDA-Public Use
  Company Number: IT-BRISTOL-MYERS SQUIBB COMPANY-BMS-2015-009763

PATIENT

DRUGS (5)
  1. COUMADIN [Suspect]
     Active Substance: WARFARIN SODIUM
     Indication: THROMBOSIS PROPHYLAXIS
     Dosage: 5 MG, QD
     Route: 048
  2. ATENOL [Concomitant]
     Active Substance: ATENOLOL
     Indication: ESSENTIAL HYPERTENSION
     Dosage: 25 MG, UNK.100 MG TABLETS
     Route: 048
  3. GLIBOMET [Concomitant]
     Active Substance: GLYBURIDE\METFORMIN HYDROCHLORIDE
     Indication: DIABETES MELLITUS
     Dosage: 800 MG, UNK.400+5 MG TABLETS
     Route: 048
  4. MICROSER [Concomitant]
     Indication: DIZZINESS
     Dosage: 8 MG, UNK
     Route: 048
  5. ACEDIUR                            /00729601/ [Concomitant]
     Indication: ESSENTIAL HYPERTENSION
     Dosage: UNK MG, UNK.50+15 MG TABLETS
     Route: 048

REACTIONS (4)
  - International normalised ratio increased [Recovering/Resolving]
  - Overdose [Recovering/Resolving]
  - Peptic ulcer [Recovering/Resolving]
  - Anaemia [Recovering/Resolving]

NARRATIVE: CASE EVENT DATE: 20150113
